FAERS Safety Report 6072899-7 (Version None)
Quarter: 2009Q1

REPORT INFORMATION
  Report Type: 
  Country: None (occurrence: None)
  Receive Date: 20090204
  Receipt Date: 20081006
  Transmission Date: 20090719
  Serious: Yes (Hospitalization)
  Sender: FDA-Public Use
  Company Number: PROG00208004755

PATIENT
  Age: 55 Year
  Sex: Female

DRUGS (10)
  1. PROGESTERONE [Suspect]
     Indication: DRUG USE FOR UNKNOWN INDICATION
     Dosage: DAILY
  2. ATAZANAVIR SULFATE [Suspect]
     Indication: DRUG USE FOR UNKNOWN INDICATION
     Dosage: DAILY
  3. ABACAVIR [Suspect]
     Indication: DRUG USE FOR UNKNOWN INDICATION
     Dosage: DAILY
  4. LAMIVUDINE [Suspect]
     Indication: DRUG USE FOR UNKNOWN INDICATION
     Dosage: DAILY
  5. TRIMETHOPRIM-SULFAMETHOXAZOLE [Suspect]
     Indication: OPPORTUNISTIC INFECTION PROPHYLAXIS
     Dosage: DAILY
  6. ESTRADIOL [Suspect]
     Indication: OPPORTUNISTIC INFECTION PROPHYLAXIS
     Dosage: DAILY
  7. FENOFIBRATE [Concomitant]
  8. HUMAN LANTUS INSULIN (HUMAN LANTUS INSULIN) [Concomitant]
  9. HUMAN ASPART INSULIN (HUMAN ASPART INSULIN) [Concomitant]
  10. GABAPENTIN [Concomitant]

REACTIONS (1)
  - PANCREATITIS ACUTE [None]
